FAERS Safety Report 18259954 (Version 5)
Quarter: 2021Q4

REPORT INFORMATION
  Report Type: Report from Study
  Country: FR (occurrence: FR)
  Receive Date: 20200912
  Receipt Date: 20211023
  Transmission Date: 20220303
  Serious: Yes (Other)
  Sender: FDA-Public Use
  Company Number: FR-ACTELION-A-CH2020-203809

PATIENT
  Age: 74 Year
  Sex: Female
  Weight: 59 kg

DRUGS (10)
  1. UPTRAVI [Suspect]
     Active Substance: SELEXIPAG
     Indication: Pulmonary arterial hypertension
     Dosage: 400 UG, BID
     Route: 048
     Dates: start: 20200324
  2. UPTRAVI [Suspect]
     Active Substance: SELEXIPAG
     Dosage: 200 UG, BID
     Route: 048
     Dates: start: 20200317
  3. UPTRAVI [Suspect]
     Active Substance: SELEXIPAG
     Dosage: 600 MCG, BID
     Route: 048
     Dates: start: 20200331
  4. UPTRAVI [Suspect]
     Active Substance: SELEXIPAG
     Dosage: 800 MCG, BID
     Route: 048
     Dates: start: 20200517
  5. UPTRAVI [Suspect]
     Active Substance: SELEXIPAG
     Dosage: 1000 MCG, BID
     Route: 048
     Dates: start: 20200524
  6. UPTRAVI [Suspect]
     Active Substance: SELEXIPAG
     Dosage: 1200 MCG, BID
     Route: 048
     Dates: start: 20200715
  7. UPTRAVI [Suspect]
     Active Substance: SELEXIPAG
     Route: 048
     Dates: start: 20200830, end: 20201201
  8. UPTRAVI [Suspect]
     Active Substance: SELEXIPAG
     Route: 048
     Dates: start: 20201202
  9. BOSENTAN [Concomitant]
     Active Substance: BOSENTAN
     Indication: Pulmonary arterial hypertension
  10. SILDENAFIL [Concomitant]
     Active Substance: SILDENAFIL
     Indication: Pulmonary arterial hypertension

REACTIONS (30)
  - Cataract operation [Recovered/Resolved]
  - Headache [Not Recovered/Not Resolved]
  - Decreased appetite [Not Recovered/Not Resolved]
  - Pain in jaw [Not Recovered/Not Resolved]
  - Stress [Recovered/Resolved]
  - Insomnia [Not Recovered/Not Resolved]
  - Nervousness [Recovered/Resolved]
  - Palpitations [Not Recovered/Not Resolved]
  - Pain [Unknown]
  - Nightmare [Recovering/Resolving]
  - Muscle spasms [Recovered/Resolved]
  - Inappropriate schedule of product administration [Recovered/Resolved]
  - Dental discomfort [Recovered/Resolved]
  - Tinnitus [Recovered/Resolved]
  - Fatigue [Not Recovered/Not Resolved]
  - Flushing [Not Recovered/Not Resolved]
  - Diarrhoea [Not Recovered/Not Resolved]
  - Electrocardiogram abnormal [Not Recovered/Not Resolved]
  - Oxygen therapy [Recovered/Resolved]
  - Dyspnoea [Recovering/Resolving]
  - Gout [Unknown]
  - Somnolence [Recovered/Resolved]
  - Pruritus [Not Recovered/Not Resolved]
  - Eye pain [Recovered/Resolved]
  - Ocular discomfort [Not Recovered/Not Resolved]
  - Anxiety [Not Recovered/Not Resolved]
  - Tachycardia [Not Recovered/Not Resolved]
  - Product dose omission issue [Recovered/Resolved]
  - Abdominal pain upper [Not Recovered/Not Resolved]
  - Gastrointestinal pain [Not Recovered/Not Resolved]

NARRATIVE: CASE EVENT DATE: 20200317
